FAERS Safety Report 23872756 (Version 1)
Quarter: 2024Q2

REPORT INFORMATION
  Report Type: Spontaneous
  Country: JP (occurrence: JP)
  Receive Date: 20240520
  Receipt Date: 20240520
  Transmission Date: 20240716
  Serious: Yes (Other)
  Sender: FDA-Public Use
  Company Number: JP-TEVA-VS-3198992

PATIENT

DRUGS (1)
  1. AZILECT [Suspect]
     Active Substance: RASAGILINE MESYLATE
     Indication: Parkinson^s disease
     Route: 048

REACTIONS (4)
  - Syncope [Not Recovered/Not Resolved]
  - Fall [Unknown]
  - Parkinson^s disease [Unknown]
  - Orthostatic hypotension [Not Recovered/Not Resolved]
